FAERS Safety Report 14112312 (Version 1)
Quarter: 2017Q4

REPORT INFORMATION
  Report Type: Spontaneous
  Country: US (occurrence: US)
  Receive Date: 20171020
  Receipt Date: 20171020
  Transmission Date: 20180321
  Serious: No
  Sender: FDA-Public Use
  Company Number: US-ACTELION-A-US2017-161309

PATIENT
  Age: 86 Year
  Sex: Female

DRUGS (1)
  1. OPSUMIT [Suspect]
     Active Substance: MACITENTAN
     Indication: COR PULMONALE
     Dosage: 10 MG, QD
     Route: 048
     Dates: start: 20151008

REACTIONS (1)
  - Cystitis [Unknown]
